FAERS Safety Report 20538052 (Version 1)
Quarter: 2022Q1

REPORT INFORMATION
  Report Type: Spontaneous
  Country: US (occurrence: US)
  Receive Date: 20220302
  Receipt Date: 20220302
  Transmission Date: 20220423
  Serious: Yes (Hospitalization, Other)
  Sender: FDA-Public Use
  Company Number: US-KYOWAKIRIN-2022BKK002406

PATIENT

DRUGS (2)
  1. POTELIGEO [Suspect]
     Active Substance: MOGAMULIZUMAB-KPKC
     Indication: Cutaneous T-cell lymphoma
     Dosage: 4 VIALS
     Route: 065
     Dates: start: 20210825, end: 2021
  2. POTELIGEO [Suspect]
     Active Substance: MOGAMULIZUMAB-KPKC
     Dosage: TWO TREATMENTS
     Route: 065
     Dates: start: 202201, end: 2022

REACTIONS (2)
  - Sepsis [Unknown]
  - Adverse event [Unknown]

NARRATIVE: CASE EVENT DATE: 20210101
